FAERS Safety Report 4805567-7 (Version None)
Quarter: 2005Q4

REPORT INFORMATION
  Report Type: 
  Country: None (occurrence: None)
  Receive Date: 20051018
  Receipt Date: 20050707
  Transmission Date: 20060501
  Serious: Yes (Hospitalization)
  Sender: FDA-Public Use
  Company Number: 2005BI009695

PATIENT
  Age: 41 Year
  Sex: Female

DRUGS (4)
  1. AVONEX LIQUID [Suspect]
     Indication: MULTIPLE SCLEROSIS
     Dosage: 30 UG; QW; IM
     Route: 030
     Dates: start: 20050317
  2. AVONEX LYOPHILIZED [Suspect]
     Indication: MULTIPLE SCLEROSIS
     Dosage: 30 UG; QW; IM
     Route: 030
     Dates: start: 20030310
  3. PROZAC [Concomitant]
  4. AVONEX LIQUID [Suspect]
     Indication: MULTIPLE SCLEROSIS
     Dosage: 30 UG; QW; IM
     Route: 030

REACTIONS (7)
  - BUTTOCK PAIN [None]
  - DEPRESSION [None]
  - DIZZINESS [None]
  - MIGRAINE [None]
  - SCHIZOPHRENIA [None]
  - SUICIDAL IDEATION [None]
  - SYNCOPE [None]
